FAERS Safety Report 18411475 (Version 1)
Quarter: 2020Q4

REPORT INFORMATION
  Report Type: Spontaneous
  Country: FR (occurrence: FR)
  Receive Date: 20201021
  Receipt Date: 20201021
  Transmission Date: 20210114
  Serious: Yes (Hospitalization)
  Sender: FDA-Public Use
  Company Number: FR-BAXTER-2020BAX020927

PATIENT
  Age: 74 Year
  Sex: Female

DRUGS (5)
  1. INEGY [Suspect]
     Active Substance: EZETIMIBE\SIMVASTATIN
     Indication: DYSLIPIDAEMIA
     Route: 048
     Dates: end: 20200930
  2. SUXAMETHONIUM (CHLORIDE) [Suspect]
     Active Substance: SUCCINYLCHOLINE CHLORIDE
     Indication: GENERAL ANAESTHESIA
     Route: 042
     Dates: start: 20200928, end: 20200928
  3. REMIFENTANYL BASE [Suspect]
     Active Substance: REMIFENTANIL
     Indication: GENERAL ANAESTHESIA
     Route: 042
     Dates: start: 20200928, end: 20200928
  4. PROPOFOL PANPHARMA 10 MG/ML EMULSION INJECTABLE [Suspect]
     Active Substance: PROPOFOL
     Indication: GENERAL ANAESTHESIA
     Route: 042
     Dates: start: 20200928, end: 20200928
  5. SEVOFLURANE BAXTER 1 ML/ML, LIQUIDE POUR INHALATION PAR VAPEUR [Suspect]
     Active Substance: SEVOFLURANE
     Indication: GENERAL ANAESTHESIA
     Route: 055
     Dates: start: 20200928, end: 20200928

REACTIONS (2)
  - Rhabdomyolysis [Recovering/Resolving]
  - Myalgia [Recovering/Resolving]

NARRATIVE: CASE EVENT DATE: 20200928
